FAERS Safety Report 5453826-X (Version None)
Quarter: 2007Q3

REPORT INFORMATION
  Report Type: 
  Country: None (occurrence: None)
  Receive Date: 20070917
  Receipt Date: 20070910
  Transmission Date: 20080115
  Serious: Yes (Death, Hospitalization)
  Sender: FDA-Public Use
  Company Number: A0680185A

PATIENT
  Age: 67 Year
  Sex: Male

DRUGS (2)
  1. AVANDIA [Suspect]
     Dosage: 4MG PER DAY
     Route: 048
  2. CONCURRENT MEDICATIONS [Concomitant]

REACTIONS (1)
  - CARDIAC FAILURE [None]
